FAERS Safety Report 7083374-5 (Version None)
Quarter: 2010Q4

REPORT INFORMATION
  Report Type: 
  Country: None (occurrence: None)
  Receive Date: 20101027
  Receipt Date: 20101018
  Transmission Date: 20110411
  Serious: Yes (Hospitalization)
  Sender: FDA-Public Use
  Company Number: TCI2010A04445

PATIENT
  Age: 74 Year
  Sex: Female

DRUGS (2)
  1. PREVPAC [Suspect]
     Indication: HELICOBACTER INFECTION
     Dosage: 1 CARD (0.5 CARD, 2 IN 1 D) PER ORAL
     Route: 048
     Dates: start: 20101005, end: 20101010
  2. ZETIA [Concomitant]

REACTIONS (1)
  - COLITIS ISCHAEMIC [None]
